FAERS Safety Report 5959260-8 (Version None)
Quarter: 2008Q4

REPORT INFORMATION
  Report Type: 
  Country: None (occurrence: None)
  Receive Date: 20081117
  Receipt Date: 20081031
  Transmission Date: 20090506
  Serious: Yes (Hospitalization, Other)
  Sender: FDA-Public Use
  Company Number: 230017K08IRL

PATIENT
  Sex: Male

DRUGS (1)
  1. REBIF [Suspect]
     Dosage: 44 MCG

REACTIONS (1)
  - NEPHROTIC SYNDROME [None]
